FAERS Safety Report 5588011-4 (Version None)
Quarter: 2008Q1

REPORT INFORMATION
  Report Type: 
  Country: None (occurrence: None)
  Receive Date: 20080109
  Receipt Date: 20080109
  Transmission Date: 20080703
  Serious: No
  Sender: FDA-Public Use
  Company Number: None

PATIENT
  Sex: Male
  Weight: 83 kg

DRUGS (2)
  1. FINASTERIDE [Suspect]
     Indication: PROSTATE CANCER
     Dosage: 5 MG QD PO
     Route: 048
     Dates: start: 20000801
  2. FLUTAMIDE [Suspect]
     Indication: PROSTATE CANCER
     Dosage: 125 MG 2 TID PO
     Route: 048
     Dates: start: 20000801

REACTIONS (1)
  - METASTASES TO BLADDER [None]
